FAERS Safety Report 23154970 (Version 2)
Quarter: 2024Q4

REPORT INFORMATION
  Report Type: Report from Study
  Country: ES (occurrence: ES)
  Receive Date: 20231107
  Receipt Date: 20241107
  Transmission Date: 20250114
  Serious: Yes (Hospitalization)
  Sender: ABBVIE
  Company Number: ES-ABBVIE-22K-144-4330362-00

PATIENT
  Age: 71 Year
  Sex: Male

DRUGS (23)
  1. SKYRIZI [Suspect]
     Active Substance: RISANKIZUMAB-RZAA
     Indication: Psoriasis
     Route: 058
     Dates: start: 20211228
  2. SKYRIZI [Suspect]
     Active Substance: RISANKIZUMAB-RZAA
     Route: 058
     Dates: start: 20211130, end: 20211228
  3. MODERNA COVID-19 VACCINE [Concomitant]
     Active Substance: ELASOMERAN
     Indication: COVID-19 prophylaxis
     Dosage: 1 (SINGLE DOSE)
     Route: 030
     Dates: start: 20211219, end: 20211219
  4. HYDROCHLOROTHIAZIDE\LOSARTAN [Concomitant]
     Active Substance: HYDROCHLOROTHIAZIDE\LOSARTAN
     Indication: Hypertension
     Dosage: LOSARTAN/HIDROCLOROTIAZIDA
     Dates: start: 20230322
  5. FUROSEMIDE [Concomitant]
     Active Substance: FUROSEMIDE
     Indication: Hypertension
     Route: 048
     Dates: start: 20210316
  6. ACETAMINOPHEN [Concomitant]
     Active Substance: ACETAMINOPHEN
     Indication: Arthralgia
     Dosage: FREQUENCY TEXT: EACH DAY
     Route: 048
     Dates: start: 20210523
  7. DABIGATRAN [Concomitant]
     Active Substance: DABIGATRAN
     Indication: Atrial flutter
     Route: 048
     Dates: start: 20230322
  8. OLMESARTAN [Concomitant]
     Active Substance: OLMESARTAN
     Indication: Hypertension
     Route: 048
     Dates: start: 20150604, end: 20230322
  9. MELOXICAM [Concomitant]
     Active Substance: MELOXICAM
     Indication: Psoriatic arthropathy
     Route: 048
     Dates: start: 20160928
  10. BISOPROLOL [Concomitant]
     Active Substance: BISOPROLOL\BISOPROLOL FUMARATE
     Indication: Hypertension
     Route: 048
     Dates: start: 20210508
  11. DAPAGLIFLOZIN ; METFORMIN [Concomitant]
     Indication: Diabetes mellitus
     Route: 048
     Dates: start: 20210520
  12. ALBUTEROL [Concomitant]
     Active Substance: ALBUTEROL
     Indication: Bronchitis chronic
     Route: 055
     Dates: start: 20210429
  13. LORAZEPAM [Concomitant]
     Active Substance: LORAZEPAM
     Indication: Depression
     Route: 048
     Dates: start: 20210509
  14. ATORVASTATIN [Concomitant]
     Active Substance: ATORVASTATIN
     Indication: Dyslipidaemia
     Route: 048
     Dates: start: 20150602
  15. RIFAMPIN [Concomitant]
     Active Substance: RIFAMPIN
     Indication: Tuberculosis
     Route: 048
     Dates: start: 20220318, end: 20220726
  16. OMEPRAZOLE [Concomitant]
     Active Substance: OMEPRAZOLE
     Indication: Antacid therapy
     Dosage: FREQUENCY TEXT: EACH DAY
     Route: 048
     Dates: start: 20210504
  17. UMECLIDINIUM BROMIDE ; VILANTEROL [Concomitant]
     Indication: Bronchitis chronic
     Route: 055
     Dates: start: 20210425
  18. APIXABAN [Concomitant]
     Active Substance: APIXABAN
     Indication: Atrial fibrillation
     Route: 048
     Dates: start: 20190718, end: 20230322
  19. MIRTAZAPINE [Concomitant]
     Active Substance: MIRTAZAPINE
     Indication: Depression
     Route: 048
     Dates: start: 20220311
  20. COVID vaccine Pfizer/BioNTech [Concomitant]
     Indication: COVID-19 prophylaxis
     Dosage: SINGLE DOSE
     Route: 030
     Dates: start: 20221220, end: 20221220
  21. COVID vaccine Pfizer/BioNTech [Concomitant]
     Indication: COVID-19 prophylaxis
     Dosage: SINGLE DOSE
     Route: 030
     Dates: start: 20220704, end: 20220704
  22. COVID vaccine Pfizer/BioNTech [Concomitant]
     Indication: COVID-19 prophylaxis
     Dosage: SINGLE DOSE
     Route: 030
     Dates: start: 20231101, end: 20231101
  23. FERROUS SULFATE ANHYDROUS [Concomitant]
     Active Substance: FERROUS SULFATE ANHYDROUS
     Indication: Anaemia
     Route: 048
     Dates: start: 20220914

REACTIONS (1)
  - Osteoarthritis [Recovered/Resolved with Sequelae]

NARRATIVE: CASE EVENT DATE: 20211222
